FAERS Safety Report 8937463 (Version 2)
Quarter: 2012Q4

REPORT INFORMATION
  Report Type: 
  Country: US (occurrence: US)
  Receive Date: 20121130
  Receipt Date: 20121211
  Transmission Date: 20130627
  Serious: No
  Sender: FDA-Public Use
  Company Number: US-009507513-1211USA012869

PATIENT
  Sex: Female
  Weight: 72.56 kg

DRUGS (5)
  1. CLARITIN [Suspect]
     Indication: SEASONAL ALLERGY
     Dosage: 10 mg, qd
     Route: 048
     Dates: start: 2009
  2. CLARITIN [Suspect]
     Indication: HOUSE DUST ALLERGY
  3. CLARITIN [Suspect]
     Indication: RHINORRHOEA
  4. CLARITIN [Suspect]
     Indication: SNEEZING
  5. CLARITIN [Suspect]
     Indication: MEDICAL OBSERVATION

REACTIONS (1)
  - Drug ineffective [Unknown]
